FAERS Safety Report 4367669-1 (Version None)
Quarter: 2004Q2

REPORT INFORMATION
  Report Type: 
  Country: None (occurrence: None)
  Receive Date: 20040601
  Receipt Date: 20030207
  Transmission Date: 20050107
  Serious: Yes (Hospitalization, Other)
  Sender: FDA-Public Use
  Company Number: GB-GLAXOSMITHKLINE-B0292099A

PATIENT
  Age: 31 Year
  Sex: Male

DRUGS (4)
  1. NARAMIG [Suspect]
     Indication: MIGRAINE
     Dosage: 2.5MG UNKNOWN
     Route: 048
     Dates: start: 20030206, end: 20030206
  2. RANITIDINE [Concomitant]
     Dosage: 150MG TWICE PER DAY
     Route: 048
  3. PULMICORT [Concomitant]
     Dosage: 2PUFF AT NIGHT
     Route: 055
  4. BRICANYL [Concomitant]
     Indication: ASTHMA
     Dosage: 2PUFF AS REQUIRED
     Route: 055

REACTIONS (4)
  - DYSKINESIA [None]
  - DYSTONIA [None]
  - HEADACHE [None]
  - TIC [None]
